FAERS Safety Report 8915090 (Version 1)
Quarter: 2012Q4

REPORT INFORMATION
  Report Type: 
  Country: US (occurrence: US)
  Receive Date: 20121119
  Receipt Date: 20121119
  Transmission Date: 20130627
  Serious: No
  Sender: FDA-Public Use
  Company Number: US-009507513-1211USA006951

PATIENT
  Age: 15 Year
  Sex: Male
  Weight: 75.74 kg

DRUGS (1)
  1. CLARITIN [Suspect]
     Indication: SEASONAL ALLERGY
     Dosage: 20 mg, bid
     Route: 048
     Dates: start: 20120911

REACTIONS (2)
  - Headache [Not Recovered/Not Resolved]
  - Overdose [Unknown]
